FAERS Safety Report 9729219 (Version 3)
Quarter: 2014Q2

REPORT INFORMATION
  Report Type: Report from Study
  Country: DE (occurrence: TR)
  Receive Date: 20131204
  Receipt Date: 20140407
  Transmission Date: 20141212
  Serious: Yes (Death, Hospitalization)
  Sender: FDA-Public Use
  Company Number: DE-ACTELION-A-NJ2013-92050

PATIENT
  Age: 67 Year
  Sex: Female
  Weight: 80 kg

DRUGS (2)
  1. VENTAVIS [Suspect]
     Indication: PULMONARY ARTERIAL HYPERTENSION
     Dosage: 6X1
     Route: 055
     Dates: start: 20130510
  2. SAMSCA [Concomitant]
     Dosage: 15 MG, UNK

REACTIONS (4)
  - Cardiac failure [Fatal]
  - Abasia [Unknown]
  - Pulmonary oedema [Unknown]
  - Dyspnoea [Unknown]
